FAERS Safety Report 6775707-1 (Version None)
Quarter: 2010Q2

REPORT INFORMATION
  Report Type: 
  Country: None (occurrence: None)
  Receive Date: 20100617
  Receipt Date: 20100615
  Transmission Date: 20101027
  Serious: Yes (Hospitalization)
  Sender: FDA-Public Use
  Company Number: US-GILEAD-2010-0029812

PATIENT
  Sex: Female
  Weight: 65.376 kg

DRUGS (6)
  1. LETAIRIS [Suspect]
     Indication: PULMONARY ARTERIAL HYPERTENSION
     Route: 048
     Dates: start: 20100125
  2. REMODULIN [Concomitant]
  3. REVATIO [Concomitant]
  4. ALDACTONE [Concomitant]
  5. K-DUR [Concomitant]
  6. VITAMIN B-12 [Concomitant]

REACTIONS (1)
  - ABSCESS [None]
